FAERS Safety Report 10004006 (Version 2)
Quarter: 2014Q1

REPORT INFORMATION
  Report Type: Spontaneous
  Country: US (occurrence: US)
  Receive Date: 20140312
  Receipt Date: 20140312
  Transmission Date: 20141002
  Serious: No
  Sender: FDA-Public Use
  Company Number: US-INCYTE CORPORATION-2013IN002983

PATIENT
  Sex: 0

DRUGS (10)
  1. JAKAFI [Suspect]
     Indication: ESSENTIAL THROMBOCYTHAEMIA
     Dosage: 20 MG, BID
     Route: 048
     Dates: start: 20130606
  2. JAKAFI [Suspect]
     Indication: MYELOFIBROSIS
     Dosage: 20 MG, BID
     Route: 048
     Dates: start: 20130620
  3. OMEPRAZOLE [Concomitant]
     Dosage: 20 MG, QD
     Route: 048
  4. AMBIEN [Concomitant]
     Dosage: 10 MG
  5. TYLENOL                            /00020001/ [Concomitant]
  6. LANTUS [Concomitant]
     Dosage: 100 UNITS /ML VIAL
  7. SIMVASTATIN [Concomitant]
     Dosage: 10 MG
  8. METFORMIN HCL [Concomitant]
     Dosage: 1,000 MG
  9. LISINOPRIL [Concomitant]
     Dosage: 10 MG
  10. PHENERGAN                          /00033001/ [Concomitant]
     Dosage: 25 MG, Q 6 HRS PRN
     Route: 048
     Dates: start: 20130620

REACTIONS (5)
  - Nausea [Recovering/Resolving]
  - Vomiting [Recovering/Resolving]
  - Abdominal pain upper [Recovering/Resolving]
  - Fatigue [Recovering/Resolving]
  - Haemoglobin decreased [Recovering/Resolving]
